FAERS Safety Report 5880239-9 (Version None)
Quarter: 2008Q3

REPORT INFORMATION
  Report Type: 
  Country: None (occurrence: None)
  Receive Date: 20080911
  Receipt Date: 20080911
  Transmission Date: 20090109
  Serious: Yes (Other)
  Sender: FDA-Public Use
  Company Number: None

PATIENT
  Sex: Female
  Weight: 57.1532 kg

DRUGS (1)
  1. CLIMARA [Suspect]
     Indication: ARTIFICIAL MENOPAUSE
     Dosage: 0.1 MG/DAY ONCE A WEEK TRANSDERMAL
     Route: 062

REACTIONS (4)
  - BALANCE DISORDER [None]
  - HEADACHE [None]
  - IMPAIRED DRIVING ABILITY [None]
  - MOOD SWINGS [None]
